FAERS Safety Report 13066077 (Version 2)
Quarter: 2017Q1

REPORT INFORMATION
  Report Type: Report from Study
  Country: DE (occurrence: DE)
  Receive Date: 20161227
  Receipt Date: 20170103
  Transmission Date: 20170428
  Serious: Yes (Life-Threatening, Hospitalization, Other)
  Sender: FDA-Public Use
  Company Number: DE-JNJFOC-20161215485

PATIENT
  Age: 71 Year
  Sex: Male
  Weight: 109 kg

DRUGS (9)
  1. XARELTO [Suspect]
     Active Substance: RIVAROXABAN
     Indication: PERIPHERAL EMBOLISM
     Dosage: CUMULATIVE DOSE TO FIRST REACTION:630MG
     Route: 048
     Dates: start: 20160409, end: 20160429
  2. XARELTO [Suspect]
     Active Substance: RIVAROXABAN
     Indication: SYNCOPE
     Dosage: CUMULATIVE DOSE TO FIRST REACTION:630MG
     Route: 048
     Dates: start: 20160409, end: 20160429
  3. XARELTO [Suspect]
     Active Substance: RIVAROXABAN
     Indication: PERIPHERAL EMBOLISM
     Dosage: CUMULATIVE DOSE TO FIRST REACTION :630MG
     Route: 048
     Dates: start: 20160430
  4. XARELTO [Suspect]
     Active Substance: RIVAROXABAN
     Indication: SYNCOPE
     Dosage: CUMULATIVE DOSE TO FIRST REACTION :630MG
     Route: 048
     Dates: start: 20160430
  5. GELAFUNDIN [Concomitant]
     Active Substance: CALCIUM CHLORIDE\GELATIN\SODIUM CHLORIDE
     Indication: PRODUCT USED FOR UNKNOWN INDICATION
     Route: 065
     Dates: end: 20161207
  6. XARELTO [Suspect]
     Active Substance: RIVAROXABAN
     Indication: PERIPHERAL EMBOLISM
     Dosage: CUMULATIVE DOSE TO FIRST REACTION :630MG
     Route: 048
     Dates: start: 20161209
  7. XARELTO [Suspect]
     Active Substance: RIVAROXABAN
     Indication: PERIPHERAL EMBOLISM
     Dosage: CUMULATIVE DOSE TO FIRST REACTION :630MG
     Route: 048
     Dates: start: 20161128
  8. XARELTO [Suspect]
     Active Substance: RIVAROXABAN
     Indication: SYNCOPE
     Dosage: CUMULATIVE DOSE TO FIRST REACTION :630MG
     Route: 048
     Dates: start: 20161128
  9. XARELTO [Suspect]
     Active Substance: RIVAROXABAN
     Indication: SYNCOPE
     Dosage: CUMULATIVE DOSE TO FIRST REACTION :630MG
     Route: 048
     Dates: start: 20161209

REACTIONS (3)
  - Angiopathy [Recovered/Resolved]
  - Aspiration [Recovered/Resolved]
  - Gastrointestinal haemorrhage [Recovered/Resolved]

NARRATIVE: CASE EVENT DATE: 20161205
